FAERS Safety Report 8387344-6 (Version None)
Quarter: 2012Q2

REPORT INFORMATION
  Report Type: 
  Country: None (occurrence: None)
  Receive Date: 20120525
  Receipt Date: 20120515
  Transmission Date: 20120825
  Serious: Yes (Hospitalization)
  Sender: FDA-Public Use
  Company Number: US-BRISTOL-MYERS SQUIBB COMPANY-16588147

PATIENT
  Age: 76 Year
  Sex: Male
  Weight: 68 kg

DRUGS (9)
  1. CHOLECALCIFEROL [Concomitant]
     Dates: start: 20120228
  2. CETUXIMAB [Suspect]
     Indication: HEAD AND NECK CANCER
     Dosage: LOADING DOSE-400MG/M2,250MG/M2-WEEKLY,01MAY12-01MAY12;1D,HELD ON 08MAY12
     Route: 042
     Dates: start: 20120501, end: 20120501
  3. CITALOPRAM HYDROBROMIDE [Concomitant]
     Dates: start: 20120420
  4. PEMETREXED DISODIUM [Suspect]
     Indication: HEAD AND NECK CANCER
     Dosage: VIAL,01MAY12-01MAY12;1D
     Route: 042
     Dates: start: 20120501, end: 20120501
  5. FOLIC ACID [Concomitant]
     Dates: start: 20120424
  6. VITAMIN B-12 [Concomitant]
     Dates: start: 20120424
  7. CISPLATIN [Suspect]
     Indication: HEAD AND NECK CANCER
     Dosage: 01MAY12-01MAY12;1D
     Route: 042
     Dates: start: 20120501, end: 20120501
  8. LOVASTATIN [Concomitant]
     Dates: start: 20120103
  9. ATENOLOL [Concomitant]
     Dates: start: 20041126

REACTIONS (1)
  - ACUTE CORONARY SYNDROME [None]
